FAERS Safety Report 23802954 (Version 1)
Quarter: 2024Q2

REPORT INFORMATION
  Report Type: Spontaneous
  Country: DE (occurrence: DE)
  Receive Date: 20240501
  Receipt Date: 20240501
  Transmission Date: 20240716
  Serious: Yes (Other)
  Sender: FDA-Public Use
  Company Number: DE-GLAXOSMITHKLINE-DE2024EME049141

PATIENT
  Age: 69 Year
  Sex: Female

DRUGS (2)
  1. PREDNISOLONE [Suspect]
     Active Substance: PREDNISOLONE
     Indication: Product used for unknown indication
     Dosage: UNK
     Route: 065
  2. NUCALA [Suspect]
     Active Substance: MEPOLIZUMAB
     Indication: Product used for unknown indication
     Dosage: 100 MG, LIQUID
     Route: 065
     Dates: start: 20230906

REACTIONS (4)
  - Adrenal insufficiency [Unknown]
  - Taste disorder [Unknown]
  - Arthralgia [Unknown]
  - Parosmia [Unknown]

NARRATIVE: CASE EVENT DATE: 20240101
